FAERS Safety Report 10788731 (Version 1)
Quarter: 2015Q1

REPORT INFORMATION
  Report Type: Spontaneous
  Country: GB (occurrence: None)
  Receive Date: 20150210
  Receipt Date: 20150210
  Transmission Date: 20150721
  Serious: No
  Sender: FDA-Public Use
  Company Number: GBR-LIT-2009003

PATIENT
  Sex: Female

DRUGS (3)
  1. CARBAGLU [Suspect]
     Active Substance: CARGLUMIC ACID
     Indication: HYPERAMMONAEMIA
     Route: 048
  2. SODIUM BENZOATE [Concomitant]
     Active Substance: SODIUM BENZOATE
  3. L-ARGININE [Concomitant]
     Active Substance: ARGININE

REACTIONS (2)
  - Feeding disorder neonatal [None]
  - Motor developmental delay [None]
